FAERS Safety Report 15231112 (Version 6)
Quarter: 2018Q3

REPORT INFORMATION
  Report Type: Report from Study
  Country: KR (occurrence: KR)
  Receive Date: 20180802
  Receipt Date: 20180903
  Transmission Date: 20181010
  Serious: Yes (Death, Life-Threatening, Other)
  Sender: FDA-Public Use
  Company Number: KR-B.I. PHARMACEUTICALS,INC./RIDGEFIELD-2018-BI-038479

PATIENT
  Age: 63 Year
  Sex: Female
  Weight: 50.5 kg

DRUGS (6)
  1. LACTICARE HC [Concomitant]
     Indication: PRURITUS
     Dosage: DAILY DOSE? UK ML; STRENGTH: 1%
     Route: 065
     Dates: start: 20170828, end: 20170905
  2. TANTUM [Concomitant]
     Active Substance: BENZYDAMINE HYDROCHLORIDE
     Indication: STOMATITIS
     Dosage: GARGLE
     Route: 065
     Dates: start: 20170828, end: 20170904
  3. GILOTRIF [Suspect]
     Active Substance: AFATINIB
     Route: 048
     Dates: start: 20170828, end: 20170904
  4. GILOTRIF [Suspect]
     Active Substance: AFATINIB
     Indication: NON-SMALL CELL LUNG CANCER
     Route: 048
     Dates: start: 20170814, end: 20170827
  5. DUPHALAC EASY [Concomitant]
     Indication: CONSTIPATION
     Dosage: DAILY DOSE: 2 PACK
     Route: 065
     Dates: start: 20170904, end: 20170905
  6. KALIMATE [Concomitant]
     Active Substance: CALCIUM POLYSTYRENE SULFONATE
     Indication: HYPERKALAEMIA
     Dosage: 5G/PACK; DAILY DOSE ? 2PACK
     Route: 065
     Dates: start: 20170724, end: 20170724

REACTIONS (3)
  - Acute kidney injury [Fatal]
  - Tumour lysis syndrome [Not Recovered/Not Resolved]
  - Hyperkalaemia [Not Recovered/Not Resolved]

NARRATIVE: CASE EVENT DATE: 20170904
